FAERS Safety Report 4289065-8 (Version None)
Quarter: 2004Q1

REPORT INFORMATION
  Report Type: 
  Country: None (occurrence: None)
  Receive Date: 20040209
  Receipt Date: 20030113
  Transmission Date: 20041129
  Serious: Yes (Hospitalization)
  Sender: FDA-Public Use
  Company Number: WAES 0301USA01110

PATIENT
  Age: 44 Year
  Sex: Male
  Weight: 102 kg

DRUGS (2)
  1. CLONIDINE [Concomitant]
  2. VIOXX [Suspect]
     Indication: PAIN
     Route: 048
     Dates: start: 20000126, end: 20011201

REACTIONS (19)
  - ANXIETY [None]
  - ASTHENIA [None]
  - BACK PAIN [None]
  - CEREBROVASCULAR ACCIDENT [None]
  - CHEST PAIN [None]
  - CHRONIC FATIGUE SYNDROME [None]
  - DIZZINESS [None]
  - EMOTIONAL DISORDER [None]
  - GASTROOESOPHAGEAL REFLUX DISEASE [None]
  - HEADACHE [None]
  - HERNIA [None]
  - HYPERTENSION [None]
  - INSOMNIA [None]
  - NECK PAIN [None]
  - PERIPHERAL VASCULAR DISORDER [None]
  - RENAL FAILURE [None]
  - ROAD TRAFFIC ACCIDENT [None]
  - STRESS SYMPTOMS [None]
  - VOMITING [None]
